FAERS Safety Report 8365154-3 (Version None)
Quarter: 2012Q1

REPORT INFORMATION
  Report Type: 
  Country: None (occurrence: None)
  Receive Date: 20120323
  Receipt Date: 20111116
  Transmission Date: 20120608
  Serious: Yes (Other)
  Sender: FDA-Public Use
  Company Number: 163-21880-11112530

PATIENT
  Age: 84 Year
  Sex: Male

DRUGS (17)
  1. MAGNESIUM (MAGNESIUM)(UNKNOWN) [Concomitant]
  2. CALCIUM (CALCIUM)(UNKNOWN) [Concomitant]
  3. TERAZOSIN(TERAZOSIN)(UNKNOWN) [Concomitant]
  4. ATENOLOL [Concomitant]
  5. ALLOPURINOL [Concomitant]
  6. POTASSIUM CHLORIDE [Concomitant]
  7. COLCHICINE(COLCHICINE)(UNKNOWN) [Concomitant]
  8. FUROSEMIDE [Concomitant]
  9. FOLIC ACID(FOLIC ACID)(UNKNOWN) [Concomitant]
  10. COLESTIPOL (COLESTIPOL)(UNKNOWN) [Concomitant]
  11. REVLIMID [Suspect]
     Indication: MULTIPLE MYELOMA
     Dosage: 15 MG, QD DAYS 1-14 THEN OFF FOR 15 DAYS, PO
     Route: 048
     Dates: start: 20110128
  12. DEXAMETHASONE [Concomitant]
  13. VITAMIN D(ERGOCALCIFEROL)(UNKNOWN) [Concomitant]
  14. ASPIRIN [Concomitant]
  15. HUMULIN (NOVOLIN 20/80)(UNKNOWN) [Concomitant]
  16. CYCLOBENZAPRINE [Concomitant]
  17. HYDROMORPHONE HCL [Concomitant]

REACTIONS (1)
  - DEEP VEIN THROMBOSIS [None]
